FAERS Safety Report 9444702 (Version 1)
Quarter: 2013Q3

REPORT INFORMATION
  Report Type: Spontaneous
  Country: GB (occurrence: GB)
  Receive Date: 20130807
  Receipt Date: 20130807
  Transmission Date: 20140515
  Serious: Yes (Death)
  Sender: FDA-Public Use
  Company Number: GB-PFIZER INC-2013225000

PATIENT
  Age: 81 Year
  Sex: Male
  Weight: 76 kg

DRUGS (7)
  1. TOVIAZ [Suspect]
     Indication: HYPERTONIC BLADDER
     Dosage: 4 MG, UNK
     Route: 048
     Dates: start: 20130524, end: 20130705
  2. TOVIAZ [Suspect]
     Dosage: 8 MG, UNK
     Route: 048
     Dates: start: 20130705
  3. AMLODIPINE [Concomitant]
     Indication: HYPERTENSION
     Dosage: 5 MG, UNK
     Route: 048
     Dates: start: 20021231
  4. ASPIRIN [Concomitant]
     Indication: CEREBROVASCULAR DISORDER
     Dosage: 75 MG, UNK
     Route: 048
     Dates: start: 20110302
  5. FLIXOTIDE EVOHALER [Concomitant]
     Indication: ASTHMA
     Dosage: 2 DF, 2X/DAY
     Route: 055
     Dates: start: 20030528
  6. SALBUTAMOL [Concomitant]
     Indication: ASTHMA
     Dosage: 2 DF, UNK
     Route: 055
     Dates: start: 20020218
  7. SIMVASTATIN [Concomitant]
     Indication: CEREBROVASCULAR DISORDER
     Dosage: 40 MG, UNK
     Route: 048
     Dates: start: 20110302

REACTIONS (1)
  - Sudden death [Fatal]
